FAERS Safety Report 8170261-4 (Version None)
Quarter: 2012Q1

REPORT INFORMATION
  Report Type: 
  Country: None (occurrence: None)
  Receive Date: 20120228
  Receipt Date: 20120224
  Transmission Date: 20120608
  Serious: Yes (Hospitalization)
  Sender: FDA-Public Use
  Company Number: PHHY2012AR015952

PATIENT
  Age: 89 Year
  Sex: Male

DRUGS (1)
  1. DIOVAN HCT [Suspect]
     Indication: HYPERTENSION
     Dosage: 1 DF (160 MG VALS, 25 MG HYDRO), DAILY
     Dates: start: 20110801, end: 20120223

REACTIONS (3)
  - CEREBROVASCULAR ACCIDENT [None]
  - BALANCE DISORDER [None]
  - PYREXIA [None]
